FAERS Safety Report 5146112-9 (Version None)
Quarter: 2006Q4

REPORT INFORMATION
  Report Type: 
  Country: None (occurrence: None)
  Receive Date: 20061108
  Receipt Date: 20061101
  Transmission Date: 20070319
  Serious: Yes (Other)
  Sender: FDA-Public Use
  Company Number: 2006UW21085

PATIENT
  Age: 67 Year
  Sex: Male

DRUGS (2)
  1. CASODEX [Suspect]
     Indication: PROSTATE CANCER
     Route: 048
  2. KETOCONAZOLE [Concomitant]
     Indication: FUNGAL INFECTION

REACTIONS (2)
  - BONE DISORDER [None]
  - DISEASE PROGRESSION [None]
